FAERS Safety Report 9475851 (Version 1)
Quarter: 2013Q3

REPORT INFORMATION
  Report Type: Spontaneous
  Country: GB (occurrence: None)
  Receive Date: 20130821
  Receipt Date: 20130821
  Transmission Date: 20140515
  Serious: Yes (Life-Threatening, Hospitalization)
  Sender: FDA-Public Use
  Company Number: GER/UKI/13/0034015

PATIENT
  Age: 63 Year
  Sex: Male

DRUGS (10)
  1. SERTRALINE (SERTRALINE) [Suspect]
     Indication: PRODUCT USED FOR UNKNOWN INDICATION
     Dates: end: 2013
  2. CARBAMAZEPINE [Suspect]
     Indication: PRODUCT USED FOR UNKNOWN INDICATION
  3. ASCORBIC ACID (ASCORBIC ACID) [Concomitant]
  4. CITRIC ACID SOLUTION (CITRIC ACID) [Concomitant]
  5. CLEXANE (ENOXAPARIN SODIUM) [Concomitant]
  6. DIAZEPAM (DIAZEPAM) [Concomitant]
  7. FLUTICASONE PROPIONATE (FLUTICASONE PROPIONATE) [Concomitant]
  8. HYOSCINE (HYOSCINE) [Concomitant]
  9. LANSOPRAZOLE (LANSOPRAZOLE) [Concomitant]
  10. SALBUTAMOL (SALBUTAMOL) [Concomitant]

REACTIONS (1)
  - Neutropenia [None]
